FAERS Safety Report 5697561-1 (Version None)
Quarter: 2008Q2

REPORT INFORMATION
  Report Type: 
  Country: None (occurrence: None)
  Receive Date: 20080408
  Receipt Date: 20080403
  Transmission Date: 20081010
  Serious: Yes (Hospitalization)
  Sender: FDA-Public Use
  Company Number: DE-WYE-G01342908

PATIENT
  Age: 50 Year
  Sex: Female

DRUGS (1)
  1. TRIGOA [Suspect]
     Indication: ORAL CONTRACEPTION
     Route: 048
     Dates: start: 20040101

REACTIONS (1)
  - CEREBROVASCULAR ACCIDENT [None]
